FAERS Safety Report 4599547-7 (Version None)
Quarter: 2005Q1

REPORT INFORMATION
  Report Type: 
  Country: None (occurrence: None)
  Receive Date: 20050307
  Receipt Date: 20050225
  Transmission Date: 20050727
  Serious: Yes (Hospitalization)
  Sender: FDA-Public Use
  Company Number: FR-GLAXOSMITHKLINE-B0373077A

PATIENT
  Age: 58 Year
  Sex: Male
  Weight: 65 kg

DRUGS (6)
  1. ZELITREX [Suspect]
     Dosage: 2TAB PER DAY
     Route: 048
     Dates: start: 20040927
  2. ZYLORIC 200 MG [Suspect]
     Dosage: 200MG PER DAY
     Route: 048
     Dates: start: 20041211, end: 20041215
  3. ORACILLINE [Suspect]
     Dosage: 2000000UNIT PER DAY
     Route: 048
     Dates: start: 20040927, end: 20050103
  4. THALIDOMIDE [Suspect]
     Dosage: 100MCG PER DAY
     Route: 048
     Dates: start: 20041215
  5. RITUXIMAB [Suspect]
     Route: 042
     Dates: start: 20041215
  6. SULFAMETHOXAZOLE AND TRIMETHOPRIM DOUBLE STRENGTH [Suspect]
     Dosage: 3TAB WEEKLY
     Route: 048
     Dates: start: 20040927, end: 20050102

REACTIONS (2)
  - NEUTROPENIA [None]
  - THROMBOCYTOPENIA [None]
